FAERS Safety Report 13436677 (Version 3)
Quarter: 2017Q3

REPORT INFORMATION
  Report Type: Report from Study
  Country: US (occurrence: US)
  Receive Date: 20170413
  Receipt Date: 20170821
  Transmission Date: 20171127
  Serious: Yes (Hospitalization)
  Sender: FDA-Public Use
  Company Number: US-ACTELION-A-US2016-145213

PATIENT
  Age: 74 Year
  Sex: Female

DRUGS (15)
  1. METFORMIN [Concomitant]
     Active Substance: METFORMIN HYDROCHLORIDE
     Dosage: 1000 MG, BID
  2. ASPIRIN. [Concomitant]
     Active Substance: ASPIRIN
     Dosage: 81 MG, UNK
  3. PROTONIX [Concomitant]
     Active Substance: PANTOPRAZOLE SODIUM
  4. PLAVIX [Concomitant]
     Active Substance: CLOPIDOGREL BISULFATE
     Dosage: 75 MG, UNK
  5. OPSUMIT [Suspect]
     Active Substance: MACITENTAN
     Indication: PULMONARY ARTERIAL HYPERTENSION
     Dosage: 10 MG, QD
     Route: 048
     Dates: start: 20160804
  6. HYDRALAZINE [Concomitant]
     Active Substance: HYDRALAZINE HYDROCHLORIDE
     Dosage: 50 MG, UNK
  7. LOSARTAN POTASSIUM. [Concomitant]
     Active Substance: LOSARTAN POTASSIUM
     Dosage: 25 MG, UNK
  8. AMOXICILLIN. [Concomitant]
     Active Substance: AMOXICILLIN
     Dosage: 500 MG, BID
  9. ELIQUIS [Concomitant]
     Active Substance: APIXABAN
  10. LISINOPRIL. [Concomitant]
     Active Substance: LISINOPRIL
  11. OMEPRAZOLE. [Concomitant]
     Active Substance: OMEPRAZOLE
  12. CARVEDILOL. [Concomitant]
     Active Substance: CARVEDILOL
     Dosage: 25 MG, UNK
  13. LASIX [Concomitant]
     Active Substance: FUROSEMIDE
     Dosage: 20 MG, QD
  14. TRADJENTA [Concomitant]
     Active Substance: LINAGLIPTIN
     Dosage: 5 MG, UNK
  15. NORVASC [Concomitant]
     Active Substance: AMLODIPINE BESYLATE
     Dosage: 5 MG, BID

REACTIONS (15)
  - Fatigue [Recovering/Resolving]
  - Arrhythmia [Recovering/Resolving]
  - Pulmonary oedema [Recovered/Resolved]
  - Medication error [Not Recovered/Not Resolved]
  - Vomiting [Not Recovered/Not Resolved]
  - Asthenia [Not Recovered/Not Resolved]
  - Drug dose omission [Not Recovered/Not Resolved]
  - Haemorrhage [Recovered/Resolved]
  - Dyspnoea [Recovering/Resolving]
  - Helicobacter infection [Unknown]
  - Purpura [Not Recovered/Not Resolved]
  - Haemoglobin decreased [Recovered/Resolved]
  - Transfusion [Recovered/Resolved]
  - Diarrhoea [Not Recovered/Not Resolved]
  - Dyspepsia [Not Recovered/Not Resolved]

NARRATIVE: CASE EVENT DATE: 20161026
